FAERS Safety Report 5883923-6 (Version None)
Quarter: 2008Q3

REPORT INFORMATION
  Report Type: 
  Country: None (occurrence: None)
  Receive Date: 20080915
  Receipt Date: 20080908
  Transmission Date: 20090109
  Serious: Yes (Disabling, Other)
  Sender: FDA-Public Use
  Company Number: BR-BAYER-200818031LA

PATIENT
  Age: 22 Year
  Sex: Female

DRUGS (2)
  1. BETAFERON [Suspect]
     Indication: MULTIPLE SCLEROSIS
     Route: 058
     Dates: start: 20080818
  2. SERTRALINE [Concomitant]
     Indication: AGITATION
     Dosage: TOTAL DAILY DOSE: 50 MG
     Route: 048
     Dates: start: 20080601, end: 20080601

REACTIONS (3)
  - ABASIA [None]
  - MUSCLE RIGIDITY [None]
  - SOMNOLENCE [None]
